FAERS Safety Report 20136273 (Version 3)
Quarter: 2022Q1

REPORT INFORMATION
  Report Type: Spontaneous
  Country: JP (occurrence: JP)
  Receive Date: 20211201
  Receipt Date: 20220107
  Transmission Date: 20220423
  Serious: Yes (Hospitalization, Other)
  Sender: FDA-Public Use
  Company Number: JP-GSKJP-JP2021JPN056646

PATIENT
  Sex: Male

DRUGS (3)
  1. BOTOX [Suspect]
     Active Substance: ONABOTULINUMTOXINA
     Indication: Hypertonic bladder
     Dosage: 100 UNITS, SINGLE
     Route: 030
     Dates: start: 20210225, end: 20210225
  2. BOTOX [Suspect]
     Active Substance: ONABOTULINUMTOXINA
     Indication: Cystitis interstitial
     Dosage: UNK
     Route: 030
  3. BEOVA [Concomitant]
     Dosage: UNK
     Dates: start: 20210624

REACTIONS (6)
  - Pyelonephritis [Recovered/Resolved]
  - Urinary tract infection [Recovered/Resolved]
  - Urinary retention [Recovering/Resolving]
  - Eyelid ptosis [Recovered/Resolved]
  - Off label use [Unknown]
  - Dysuria [Recovered/Resolved]

NARRATIVE: CASE EVENT DATE: 20210301
